FAERS Safety Report 21185047 (Version 1)
Quarter: 2022Q3

REPORT INFORMATION
  Report Type: Spontaneous
  Country: US (occurrence: None)
  Receive Date: 20220807
  Receipt Date: 20220807
  Transmission Date: 20221027
  Serious: Yes (Disabling)
  Sender: FDA-Public Use
  Company Number: None

PATIENT
  Age: 61 Year
  Sex: Female
  Weight: 68.4 kg

DRUGS (11)
  1. VUITY [Suspect]
     Active Substance: PILOCARPINE HYDROCHLORIDE
     Indication: Presbyopia
     Dosage: OTHER QUANTITY : 1 DROP(S);?FREQUENCY : DAILY;?
     Route: 047
     Dates: start: 20220711, end: 20220712
  2. PROZAC [Concomitant]
     Active Substance: FLUOXETINE HYDROCHLORIDE
  3. MULTI-VITAMIN [Concomitant]
     Active Substance: .ALPHA.-TOCOPHEROL ACETATE, DL-\ASCORBIC ACID\CYANOCOBALAMIN\FLUORIDE ION\FOLIC ACID\NIACIN\PYRIDOXI
  4. CALCIUM [Concomitant]
     Active Substance: CALCIUM
  5. MAGNESIUM [Concomitant]
     Active Substance: MAGNESIUM
  6. VITAMIN D [Concomitant]
     Active Substance: VITAMIN D NOS
  7. RIBOFLAVIN [Concomitant]
     Active Substance: RIBOFLAVIN
  8. COENZYME Q10 [Concomitant]
     Active Substance: DIETARY SUPPLEMENT\UBIDECARENONE
  9. PROBIOTICS NOS [Concomitant]
     Active Substance: PROBIOTICS NOS
  10. FISH OIL [Concomitant]
     Active Substance: FISH OIL
  11. COLLAGEN [Concomitant]
     Active Substance: COLLAGEN

REACTIONS (4)
  - Vision blurred [None]
  - Vitreous floaters [None]
  - Photopsia [None]
  - Vitreous detachment [None]

NARRATIVE: CASE EVENT DATE: 20220711
